FAERS Safety Report 14570710 (Version 1)
Quarter: 2018Q1

REPORT INFORMATION
  Report Type: Report from Study
  Country: NZ (occurrence: NZ)
  Receive Date: 20180226
  Receipt Date: 20180226
  Transmission Date: 20180509
  Serious: Yes (Death)
  Sender: FDA-Public Use
  Company Number: NZ-CIPLA LTD.-2018NZ06888

PATIENT

DRUGS (4)
  1. DEMCIZUMAB [Suspect]
     Active Substance: DEMCIZUMAB
     Indication: NON-SMALL CELL LUNG CANCER METASTATIC
     Dosage: 7.5MG/KG, EVERY 3 WEEKS, FOR UP TO 4 TREATMENT CYCLES
     Route: 065
  2. PEMETREXED. [Suspect]
     Active Substance: PEMETREXED
     Indication: NON-SMALL CELL LUNG CANCER METASTATIC
     Dosage: 500 MG/M2, FOR UP TO 4 TREATMENT CYCLES
     Route: 065
  3. CARBOPLATIN. [Suspect]
     Active Substance: CARBOPLATIN
     Indication: NON-SMALL CELL LUNG CANCER METASTATIC
     Dosage: [AUC 6, EVERY 3 WEEKS,4 CYCLES]
     Route: 065
  4. PEMETREXED. [Suspect]
     Active Substance: PEMETREXED
     Dosage: 500 MG/M2 AS CONTINUOUS MAINTENANCE CHEMOTHERAPY, UNK
     Route: 065

REACTIONS (1)
  - Death [Fatal]
